FAERS Safety Report 9242607 (Version 1)
Quarter: 2013Q2

REPORT INFORMATION
  Report Type: Spontaneous
  Country: US (occurrence: US)
  Receive Date: 20130419
  Receipt Date: 20130419
  Transmission Date: 20140414
  Serious: Yes (Hospitalization)
  Sender: FDA-Public Use
  Company Number: US-GLAXOSMITHKLINE-A1019614A

PATIENT
  Age: 92 Year
  Sex: Female

DRUGS (7)
  1. ADVAIR [Suspect]
     Indication: ASTHMA
     Dosage: 1PUFF TWICE PER DAY
     Route: 055
     Dates: start: 200712
  2. VERAPAMIL [Concomitant]
  3. NAMENDA [Concomitant]
  4. MONTELUKAST [Concomitant]
  5. ATORVASTATIN [Concomitant]
  6. DORZOLAMIDE HYDROCHLORIDE [Concomitant]
  7. GALANTAMINE [Concomitant]

REACTIONS (2)
  - Lung disorder [Recovered/Resolved]
  - Heart rate increased [Recovered/Resolved]
